FAERS Safety Report 9803936 (Version 3)
Quarter: 2014Q1

REPORT INFORMATION
  Report Type: Spontaneous
  Country: US (occurrence: US)
  Receive Date: 20140108
  Receipt Date: 20140212
  Transmission Date: 20141002
  Serious: Yes (Death)
  Sender: FDA-Public Use
  Company Number: US-PFIZER INC-2014001861

PATIENT
  Sex: Female

DRUGS (4)
  1. XALATAN [Suspect]
     Dosage: UNK
  2. LIPITOR [Suspect]
     Dosage: UNK
  3. CORDARONE [Suspect]
     Dosage: UNK
  4. AZULFIDINE EN [Concomitant]
     Dosage: UNK

REACTIONS (1)
  - Death [Fatal]
